FAERS Safety Report 25970630 (Version 1)
Quarter: 2025Q4

REPORT INFORMATION
  Report Type: Spontaneous
  Country: JP (occurrence: JP)
  Receive Date: 20251028
  Receipt Date: 20251028
  Transmission Date: 20260117
  Serious: Yes (Death, Hospitalization, Other)
  Sender: MERCK SHARP & DOHME LLC
  Company Number: JP-ONO-2025JP018079

PATIENT
  Age: 93 Year
  Sex: Male
  Weight: 50.9 kg

DRUGS (3)
  1. SITAGLIPTIN [Suspect]
     Active Substance: SITAGLIPTIN
     Indication: Type 2 diabetes mellitus
     Dosage: UNK
     Route: 048
     Dates: start: 2019, end: 202305
  2. REPAGLINIDE [Concomitant]
     Active Substance: REPAGLINIDE
     Dosage: UNK
     Route: 065
     Dates: start: 20250707
  3. PREDNISOLONE [Suspect]
     Active Substance: PREDNISOLONE
     Indication: Pemphigoid
     Dosage: 30 MG, EVERYDAY
     Route: 048
     Dates: start: 20250705

REACTIONS (6)
  - Pemphigoid [Fatal]
  - Chronic kidney disease [Unknown]
  - Cerebral infarction [Fatal]
  - Depressed level of consciousness [Fatal]
  - Blood pressure decreased [Fatal]
  - Oxygen saturation decreased [Fatal]

NARRATIVE: CASE EVENT DATE: 20250101
